FAERS Safety Report 6000813-9 (Version None)
Quarter: 2008Q4

REPORT INFORMATION
  Report Type: 
  Country: None (occurrence: None)
  Receive Date: 20081215
  Receipt Date: 20080815
  Transmission Date: 20090506
  Serious: No
  Sender: FDA-Public Use
  Company Number: US-AMGEN-KDL292007

PATIENT
  Sex: Female
  Weight: 80.8 kg

DRUGS (4)
  1. ENBREL [Suspect]
     Indication: PSORIASIS
     Route: 058
     Dates: start: 20080616, end: 20080630
  2. CLOBETASOL PROPIONATE [Concomitant]
     Dates: start: 20070823
  3. DESONIDE [Concomitant]
     Dates: start: 20070823
  4. FLUOCINONIDE [Concomitant]
     Dates: start: 20070823

REACTIONS (6)
  - ECCHYMOSIS [None]
  - ERYTHEMA [None]
  - INJECTION SITE ERYTHEMA [None]
  - INJECTION SITE INDURATION [None]
  - INJECTION SITE PAIN [None]
  - URINE ANALYSIS ABNORMAL [None]
